FAERS Safety Report 11421208 (Version 2)
Quarter: 2015Q4

REPORT INFORMATION
  Report Type: Spontaneous
  Country: US (occurrence: US)
  Receive Date: 20150826
  Receipt Date: 20151015
  Transmission Date: 20160304
  Serious: No
  Sender: FDA-Public Use
  Company Number: GXBR2015US001904

PATIENT
  Sex: Female

DRUGS (1)
  1. AMOXICILLIN+CLARITHROMYCIN+LANSOPRAZOLE [Suspect]
     Active Substance: AMOXICILLIN\CLARITHROMYCIN\LANSOPRAZOLE
     Indication: HELICOBACTER GASTRITIS
     Dosage: UNK DF, UNK
     Route: 065

REACTIONS (7)
  - Diarrhoea [Unknown]
  - Malaise [Unknown]
  - Dysgeusia [Unknown]
  - Abdominal pain [Unknown]
  - Crying [Unknown]
  - Anxiety [Unknown]
  - Depression [Unknown]
